FAERS Safety Report 23675121 (Version 2)
Quarter: 2024Q2

REPORT INFORMATION
  Report Type: Spontaneous
  Country: US (occurrence: US)
  Receive Date: 20240326
  Receipt Date: 20240404
  Transmission Date: 20240716
  Serious: No
  Sender: FDA-Public Use
  Company Number: US-JNJFOC-20240361129

PATIENT
  Age: 44 Year
  Sex: Male

DRUGS (7)
  1. TREMFYA [Suspect]
     Active Substance: GUSELKUMAB
     Indication: Psoriasis
     Route: 065
  2. TREMFYA [Suspect]
     Active Substance: GUSELKUMAB
  3. TREMFYA [Suspect]
     Active Substance: GUSELKUMAB
  4. VTAMA [Suspect]
     Active Substance: TAPINAROF
  5. BETAMETHASONE DIPROPIONATE\CALCIPOTRIENE HYDRATE [Suspect]
     Active Substance: BETAMETHASONE DIPROPIONATE\CALCIPOTRIENE HYDRATE
  6. HUMIRA [Suspect]
     Active Substance: ADALIMUMAB
  7. COSENTYX [Suspect]
     Active Substance: SECUKINUMAB

REACTIONS (1)
  - Drug ineffective [Unknown]
